FAERS Safety Report 17630763 (Version 1)
Quarter: 2020Q2

REPORT INFORMATION
  Report Type: Spontaneous
  Country: BE (occurrence: BE)
  Receive Date: 20200406
  Receipt Date: 20200406
  Transmission Date: 20200713
  Serious: Yes (Other)
  Sender: FDA-Public Use
  Company Number: BE-TEVA-2020-BE-1219261

PATIENT
  Age: 18 Year
  Sex: Female

DRUGS (4)
  1. NOVALGINE 500 MG [Suspect]
     Active Substance: METAMIZOLE SODIUM
     Dosage: 1 DF
     Route: 048
  2. DIAZEPAM TEVA 5 MG [Suspect]
     Active Substance: DIAZEPAM
     Dosage: 1 DF
     Route: 048
  3. DAFALGAN FORTE 1 G [Suspect]
     Active Substance: ACETAMINOPHEN
     Route: 048
  4. CIRRUS [Suspect]
     Active Substance: CETIRIZINE HYDROCHLORIDE\PSEUDOEPHEDRINE HYDROCHLORIDE
     Dosage: 1 DF
     Route: 048

REACTIONS (3)
  - Confusional state [Unknown]
  - Vertigo [Unknown]
  - Palpitations [Unknown]
